FAERS Safety Report 16326044 (Version 1)
Quarter: 2019Q2

REPORT INFORMATION
  Report Type: Report from Study
  Country: ES (occurrence: ES)
  Receive Date: 20190517
  Receipt Date: 20190517
  Transmission Date: 20190711
  Serious: Yes (Other)
  Sender: FDA-Public Use
  Company Number: ES-MYLANLABS-2019M1046082

PATIENT
  Age: 85 Year
  Sex: Male

DRUGS (8)
  1. SINTROM [Interacting]
     Active Substance: ACENOCOUMAROL
     Indication: ATRIAL FIBRILLATION
     Dosage: SEG?N INR
     Route: 048
     Dates: start: 2017, end: 20171114
  2. ESOMEPRAZOLE. [Suspect]
     Active Substance: ESOMEPRAZOLE MAGNESIUM
     Indication: HIATUS HERNIA
     Dosage: 1-0-0
     Route: 065
     Dates: start: 2011
  3. TORASEMIDA [Concomitant]
     Active Substance: TORSEMIDE
     Dosage: 1-0-0
     Route: 048
  4. MOTILIUM [Concomitant]
     Active Substance: DOMPERIDONE
     Route: 048
  5. ENALAPRIL [Concomitant]
     Active Substance: ENALAPRIL
     Route: 048
  6. MASDIL [Concomitant]
     Active Substance: DILTIAZEM HYDROCHLORIDE
     Dosage: 1/2-0-1/2
     Route: 048
  7. TAMSULOSINA                        /01280301/ [Concomitant]
     Dosage: 0-0-1
     Route: 048
  8. BETMIGA [Concomitant]
     Active Substance: MIRABEGRON
     Dosage: 1-0-0
     Route: 048

REACTIONS (2)
  - Drug interaction [Unknown]
  - Iron deficiency anaemia [Unknown]

NARRATIVE: CASE EVENT DATE: 2017
